FAERS Safety Report 10592449 (Version 1)
Quarter: 2014Q4

REPORT INFORMATION
  Report Type: Spontaneous
  Country: TH (occurrence: TH)
  Receive Date: 20141119
  Receipt Date: 20141119
  Transmission Date: 20150529
  Serious: Yes (Hospitalization)
  Sender: FDA-Public Use
  Company Number: PHHY2014TH147160

PATIENT
  Age: 4 Year
  Sex: Female

DRUGS (2)
  1. DEFERASIROX [Suspect]
     Active Substance: DEFERASIROX
     Dosage: 35 MG/KG, QD
     Route: 065
  2. DEFERASIROX [Suspect]
     Active Substance: DEFERASIROX
     Indication: THALASSAEMIA BETA
     Dosage: 21 MG/KG, QD
     Route: 065

REACTIONS (9)
  - Hypophosphataemia [Recovered/Resolved]
  - Glycosuria [Recovered/Resolved]
  - Gastroenteritis [Recovered/Resolved]
  - Acute kidney injury [Recovered/Resolved]
  - Vitamin D deficiency [Recovered/Resolved]
  - Fanconi syndrome [Unknown]
  - Hypocalcaemia [Recovered/Resolved]
  - Albuminuria [Recovered/Resolved]
  - Metabolic acidosis [Not Recovered/Not Resolved]
